FAERS Safety Report 5441087-7 (Version None)
Quarter: 2007Q3

REPORT INFORMATION
  Report Type: 
  Country: None (occurrence: None)
  Receive Date: 20070831
  Receipt Date: 20070821
  Transmission Date: 20080115
  Serious: Yes (Life-Threatening, Hospitalization)
  Sender: FDA-Public Use
  Company Number: JP-PFIZER INC-2007051462

PATIENT
  Sex: Male
  Weight: 60 kg

DRUGS (11)
  1. ZYVOX [Suspect]
     Indication: STAPHYLOCOCCAL INFECTION
     Dosage: DAILY DOSE:600MG-FREQ:FREQUENCY: BID
     Route: 048
     Dates: start: 20070517, end: 20070524
  2. PRODIF [Suspect]
     Indication: OTITIS EXTERNA CANDIDA
     Dosage: DAILY DOSE:252.3MG-FREQ:FREQUENCY: QD
     Dates: start: 20070606, end: 20070616
  3. LASIX [Concomitant]
     Indication: GENERALISED OEDEMA
     Route: 048
     Dates: start: 20070521, end: 20070616
  4. OLMETEC [Concomitant]
     Indication: RENAL FAILURE CHRONIC
     Route: 048
  5. ITRIZOLE [Concomitant]
     Route: 048
     Dates: start: 20070604, end: 20070616
  6. EBASTEL [Concomitant]
     Indication: RHINITIS ALLERGIC
     Route: 048
     Dates: start: 20070522, end: 20070619
  7. BIOFERMIN [Concomitant]
     Indication: ENTERITIS INFECTIOUS
     Route: 048
     Dates: start: 20070525, end: 20070619
  8. LEVOFLOXACIN [Concomitant]
     Indication: ENTERITIS INFECTIOUS
     Route: 048
     Dates: start: 20070529, end: 20070605
  9. LAMISIL [Concomitant]
     Route: 062
     Dates: start: 20070606, end: 20070619
  10. ATARAX [Concomitant]
     Indication: URTICARIA
     Route: 048
     Dates: start: 20070513, end: 20070619
  11. ADALAT [Concomitant]
     Indication: HYPERTENSION
     Route: 048
     Dates: start: 20070619, end: 20070619

REACTIONS (1)
  - TORSADE DE POINTES [None]
